FAERS Safety Report 6026391-6 (Version None)
Quarter: 2009Q1

REPORT INFORMATION
  Report Type: 
  Country: None (occurrence: None)
  Receive Date: 20090102
  Receipt Date: 20081225
  Transmission Date: 20090719
  Serious: Yes (Death, Hospitalization)
  Sender: FDA-Public Use
  Company Number: JP-ABBOTT-08P-087-0495241-00

PATIENT
  Age: 76 Year
  Sex: Male

DRUGS (19)
  1. LEUPROLIDE ACETATE [Suspect]
     Indication: PROSTATE CANCER STAGE II
     Route: 058
     Dates: start: 20060928, end: 20080214
  2. LEUPROLIDE ACETATE [Suspect]
     Route: 058
     Dates: start: 20060803, end: 20060831
  3. CASODEX [Concomitant]
     Indication: PROSTATE CANCER STAGE II
     Route: 048
  4. HALCION [Concomitant]
     Indication: DRUG USE FOR UNKNOWN INDICATION
     Route: 048
     Dates: start: 20060608
  5. NITOROL [Concomitant]
     Indication: DRUG USE FOR UNKNOWN INDICATION
     Route: 048
  6. HERBESSER [Concomitant]
     Indication: DRUG USE FOR UNKNOWN INDICATION
     Route: 048
  7. AMLODIN [Concomitant]
     Indication: DRUG USE FOR UNKNOWN INDICATION
     Route: 048
  8. DIGOXIN [Concomitant]
     Indication: DRUG USE FOR UNKNOWN INDICATION
     Route: 048
     Dates: end: 20070426
  9. SIGMART [Concomitant]
     Indication: DRUG USE FOR UNKNOWN INDICATION
     Route: 048
  10. GASTROM [Concomitant]
     Indication: DRUG USE FOR UNKNOWN INDICATION
     Route: 048
  11. FRANDOL [Concomitant]
     Indication: DRUG USE FOR UNKNOWN INDICATION
     Route: 062
  12. FRANDOL [Concomitant]
     Indication: ANGINA PECTORIS
     Route: 048
     Dates: start: 20070329
  13. LAC B [Concomitant]
     Indication: CONSTIPATION
     Route: 048
     Dates: start: 20070329
  14. TOUGHMAC E [Concomitant]
     Indication: GASTRITIS
     Route: 048
     Dates: start: 20070329
  15. WARFARIN POTASSIUM [Concomitant]
     Indication: ARRHYTHMIA
     Route: 048
     Dates: start: 20070329
  16. LOXONIN [Concomitant]
     Indication: BACK PAIN
     Route: 048
     Dates: start: 20070403
  17. MARZULENE S [Concomitant]
     Indication: GASTRITIS PROPHYLAXIS
     Route: 048
     Dates: start: 20070403
  18. MOHRUS [Concomitant]
     Indication: BACK PAIN
     Route: 062
     Dates: start: 20070403
  19. VESICARE [Concomitant]
     Indication: HYPERTONIC BLADDER
     Route: 048
     Dates: start: 20070315

REACTIONS (2)
  - HOSPITALISATION [None]
  - PNEUMONIA [None]
